FAERS Safety Report 12727474 (Version 3)
Quarter: 2017Q2

REPORT INFORMATION
  Report Type: Spontaneous
  Country: US (occurrence: US)
  Receive Date: 20160909
  Receipt Date: 20170421
  Transmission Date: 20170830
  Serious: Yes (Other)
  Sender: FDA-Public Use
  Company Number: US-TEVA-691182ACC

PATIENT
  Age: 31 Year
  Sex: Female
  Weight: 63.11 kg

DRUGS (3)
  1. NAPROSYN [Concomitant]
     Active Substance: NAPROXEN
  2. PARAGARD T 380A [Suspect]
     Active Substance: COPPER
     Indication: CONTRACEPTION
     Dates: start: 20141118, end: 20150715
  3. SINGULAIR [Concomitant]
     Active Substance: MONTELUKAST SODIUM
     Indication: HYPERSENSITIVITY

REACTIONS (5)
  - Device dislocation [Recovered/Resolved]
  - Dyspareunia [Unknown]
  - Muscle spasms [Recovered/Resolved]
  - Pelvic discomfort [Unknown]
  - Embedded device [Recovered/Resolved]

NARRATIVE: CASE EVENT DATE: 201411
